FAERS Safety Report 9771911 (Version 2)
Quarter: 2014Q1

REPORT INFORMATION
  Report Type: Report from Study
  Country: JP (occurrence: JP)
  Receive Date: 20131219
  Receipt Date: 20140115
  Transmission Date: 20141002
  Serious: Yes (Hospitalization)
  Sender: FDA-Public Use
  Company Number: JP-ROCHE-1321451

PATIENT
  Age: 47 Year
  Sex: Male

DRUGS (5)
  1. XOLAIR [Suspect]
     Indication: ASTHMA
     Route: 058
     Dates: start: 20121207
  2. XOLAIR [Suspect]
     Route: 058
     Dates: start: 20131202
  3. XOLAIR [Suspect]
     Route: 058
     Dates: start: 20131220
  4. PREDONINE [Concomitant]
  5. SYMBICORT [Concomitant]

REACTIONS (2)
  - Hepatic function abnormal [Recovered/Resolved]
  - Blood lactate dehydrogenase increased [Unknown]
